FAERS Safety Report 9518585 (Version 1)
Quarter: 2013Q4

REPORT INFORMATION
  Report Type: Spontaneous
  Country: US (occurrence: None)
  Receive Date: 20130910
  Receipt Date: 20130910
  Transmission Date: 20140711
  Serious: Yes (Hospitalization)
  Sender: FDA-Public Use
  Company Number: None

PATIENT
  Age: 32 Year
  Sex: Male
  Weight: 75.4 kg

DRUGS (1)
  1. FIDAXOMICIN [Suspect]
     Indication: CLOSTRIDIUM DIFFICILE INFECTION
     Dosage: 200 MG ORAL  SINGLE DOSE
     Route: 048
     Dates: start: 20130815

REACTIONS (2)
  - Joint injury [None]
  - Ligament rupture [None]
